FAERS Safety Report 9478582 (Version 2)
Quarter: 2013Q3

REPORT INFORMATION
  Report Type: Spontaneous
  Country: JP (occurrence: JP)
  Receive Date: 20130827
  Receipt Date: 20130902
  Transmission Date: 20140515
  Serious: Yes (Other)
  Sender: FDA-Public Use
  Company Number: JP-PFIZER INC-2013242896

PATIENT
  Age: 72 Year
  Sex: Female

DRUGS (2)
  1. EPIRUBICIN HYDROCHLORIDE [Suspect]
     Indication: BREAST CANCER
     Dosage: 115 MG, UNK
     Dates: start: 201206
  2. CYCLOPHOSPHAMIDE [Suspect]
     Indication: BREAST CANCER
     Dosage: 935 MG, UNK
     Dates: start: 201206

REACTIONS (2)
  - Extravasation [Recovering/Resolving]
  - Skin necrosis [Recovering/Resolving]
